FAERS Safety Report 25967411 (Version 2)
Quarter: 2025Q4

REPORT INFORMATION
  Report Type: Spontaneous
  Country: US (occurrence: US)
  Receive Date: 20251028
  Receipt Date: 20251104
  Transmission Date: 20260118
  Serious: Yes (Other)
  Sender: AUROBINDO
  Company Number: US-AUROBINDO-AUR-APL-2025-044240

PATIENT
  Age: 64 Year
  Sex: Female
  Weight: 77.56 kg

DRUGS (5)
  1. AMOXICILLIN\CLAVULANATE POTASSIUM [Suspect]
     Active Substance: AMOXICILLIN\CLAVULANATE POTASSIUM
     Indication: Sinusitis
     Dosage: UNK, TWO TIMES A DAY
     Route: 048
     Dates: start: 20250811
  2. DOXYCYCLINE [Concomitant]
     Active Substance: DOXYCYCLINE
     Indication: Product used for unknown indication
     Dosage: UNK
     Route: 065
  3. PROCHLORPERAZINE [Concomitant]
     Active Substance: PROCHLORPERAZINE
     Indication: Product used for unknown indication
     Dosage: UNK
     Route: 065
  4. SUCRALFATE [Concomitant]
     Active Substance: SUCRALFATE
     Indication: Product used for unknown indication
     Dosage: UNK
     Route: 065
  5. ONDANSETRON [Concomitant]
     Active Substance: ONDANSETRON
     Indication: Product used for unknown indication
     Dosage: UNK
     Route: 065

REACTIONS (12)
  - Gastritis erosive [Unknown]
  - Throat irritation [Not Recovered/Not Resolved]
  - Sinusitis [Not Recovered/Not Resolved]
  - Oropharyngeal erythema [Not Recovered/Not Resolved]
  - Abdominal discomfort [Not Recovered/Not Resolved]
  - Dyspepsia [Not Recovered/Not Resolved]
  - Feeding disorder [Not Recovered/Not Resolved]
  - Weight decreased [Unknown]
  - Dehydration [Unknown]
  - Epistaxis [Unknown]
  - Drug ineffective [Unknown]
  - Product solubility abnormal [Not Recovered/Not Resolved]

NARRATIVE: CASE EVENT DATE: 20250811
